FAERS Safety Report 5909770-4 (Version None)
Quarter: 2008Q4

REPORT INFORMATION
  Report Type: 
  Country: None (occurrence: None)
  Receive Date: 20081007
  Receipt Date: 20080723
  Transmission Date: 20090506
  Serious: No
  Sender: FDA-Public Use
  Company Number: US-BAYER-200829525NA

PATIENT
  Sex: Female
  Weight: 82 kg

DRUGS (1)
  1. MIRENA [Suspect]
     Indication: CONTRACEPTION
     Route: 015
     Dates: start: 20080501

REACTIONS (4)
  - ABDOMINAL PAIN [None]
  - DYSPAREUNIA [None]
  - FOOD CRAVING [None]
  - PREMENSTRUAL SYNDROME [None]
